FAERS Safety Report 5170714-7 (Version None)
Quarter: 2006Q4

REPORT INFORMATION
  Report Type: 
  Country: None (occurrence: None)
  Receive Date: 20060919
  Receipt Date: 20060714
  Transmission Date: 20070319
  Serious: No
  Sender: FDA-Public Use
  Company Number: 2006US001591

PATIENT
  Age: 74 Year
  Sex: Male

DRUGS (7)
  1. VESICARE [Suspect]
     Indication: HYPERTONIC BLADDER
     Dosage: 5 MG
     Dates: start: 20060301
  2. FUROSEMIDE (FUROSEMIDE SODIUM) [Concomitant]
  3. PLAVIX [Concomitant]
  4. REQUIP [Concomitant]
  5. SINEMET (CARBIDOPA) [Concomitant]
  6. AVODART [Concomitant]
  7. FLOMAX [Concomitant]

REACTIONS (1)
  - DRUG INEFFECTIVE [None]
